FAERS Safety Report 18355461 (Version 1)
Quarter: 2020Q4

REPORT INFORMATION
  Report Type: Spontaneous
  Country: US (occurrence: US)
  Receive Date: 20201006
  Receipt Date: 20201006
  Transmission Date: 20210114
  Serious: Yes (Hospitalization)
  Sender: FDA-Public Use
  Company Number: None

PATIENT
  Age: 53 Year
  Sex: Male
  Weight: 46.27 kg

DRUGS (1)
  1. CEFAZOLIN (CEFAZOLIN NA 1GM/BAG INJ) [Suspect]
     Active Substance: CEFAZOLIN SODIUM
     Indication: ENDOCARDITIS
     Dosage: ?          OTHER ROUTE:IV?
     Route: 042
     Dates: start: 20200103, end: 20200114

REACTIONS (1)
  - Immune thrombocytopenia [None]

NARRATIVE: CASE EVENT DATE: 20200114
